FAERS Safety Report 7194356-7 (Version None)
Quarter: 2010Q4

REPORT INFORMATION
  Report Type: 
  Country: None (occurrence: None)
  Receive Date: 20101124
  Receipt Date: 20101008
  Transmission Date: 20110411
  Serious: No
  Sender: FDA-Public Use
  Company Number: 020125

PATIENT
  Sex: Female
  Weight: 113.4 kg

DRUGS (2)
  1. LACOSAMIDE [Suspect]
     Indication: CONVULSION
     Dosage: (600 MG, 200MG+400MG ORAL) ; (800 MG, 200MG+600MG ORAL)
     Route: 048
     Dates: start: 20090101
  2. TOPAMAX [Concomitant]

REACTIONS (9)
  - CONFUSIONAL STATE [None]
  - DIPLOPIA [None]
  - DIZZINESS [None]
  - GAIT DISTURBANCE [None]
  - LETHARGY [None]
  - MEDICATION ERROR [None]
  - NAUSEA [None]
  - OVERDOSE [None]
  - TREMOR [None]
